FAERS Safety Report 13472872 (Version 2)
Quarter: 2017Q2

REPORT INFORMATION
  Report Type: Spontaneous
  Country: US (occurrence: US)
  Receive Date: 20170424
  Receipt Date: 20170629
  Transmission Date: 20170830
  Serious: Yes (Hospitalization, Other)
  Sender: FDA-Public Use
  Company Number: US-JNJFOC-20170418245

PATIENT
  Age: 58 Year
  Sex: Female

DRUGS (1)
  1. DURAGESIC [Suspect]
     Active Substance: FENTANYL
     Indication: PRODUCT USED FOR UNKNOWN INDICATION
     Route: 065

REACTIONS (3)
  - Nausea [Unknown]
  - Meningitis [Unknown]
  - Body temperature increased [Unknown]

NARRATIVE: CASE EVENT DATE: 2017
